FAERS Safety Report 5264404-X (Version None)
Quarter: 2007Q1

REPORT INFORMATION
  Report Type: 
  Country: None (occurrence: None)
  Receive Date: 20070309
  Receipt Date: 20070226
  Transmission Date: 20070707
  Serious: Yes (Life-Threatening, Hospitalization)
  Sender: FDA-Public Use
  Company Number: 2007S1000243

PATIENT
  Age: 5 Year
  Sex: Female
  Weight: 16.8 kg

DRUGS (6)
  1. DURACLON [Suspect]
     Indication: RESTLESSNESS
     Dosage: 0.1 MG; PRN; GT
     Dates: start: 20060101, end: 20060101
  2. SEVOFLURANE [Suspect]
     Indication: GENERAL ANAESTHESIA
     Dosage: 8 PCT; 1X; INH
     Route: 055
     Dates: start: 20060101, end: 20060101
  3. NITROUS OXIDE W/ OXYGEN [Suspect]
     Indication: GENERAL ANAESTHESIA
     Dosage: 1X; INH
     Route: 055
     Dates: start: 20060101, end: 20060101
  4. RANITIDINE [Concomitant]
  5. LACTULOSE [Concomitant]
  6. BACLOFEN [Concomitant]

REACTIONS (6)
  - BLOOD PRESSURE DECREASED [None]
  - CARDIAC ARREST [None]
  - DIASTOLIC DYSFUNCTION [None]
  - OVERDOSE [None]
  - PULSE ABSENT [None]
  - SINUS BRADYCARDIA [None]
